FAERS Safety Report 8837562 (Version 3)
Quarter: 2012Q4

REPORT INFORMATION
  Report Type: 
  Country: US (occurrence: US)
  Receive Date: 20121012
  Receipt Date: 20121120
  Transmission Date: 20130627
  Serious: Yes (Hospitalization, Other)
  Sender: FDA-Public Use
  Company Number: US-PFIZER INC-2012253007

PATIENT
  Sex: Male

DRUGS (3)
  1. LIPITOR [Suspect]
     Dosage: UNK
  2. CELEBREX [Suspect]
     Dosage: UNK
  3. VIAGRA [Suspect]
     Dosage: UNK

REACTIONS (2)
  - Anaemia [Unknown]
  - Gastric ulcer [Unknown]
